FAERS Safety Report 17082619 (Version 1)
Quarter: 2019Q4

REPORT INFORMATION
  Report Type: Spontaneous
  Country: FR (occurrence: FR)
  Receive Date: 20191127
  Receipt Date: 20191127
  Transmission Date: 20200122
  Serious: Yes (Death)
  Sender: FDA-Public Use
  Company Number: FR-MYLANLABS-2019M1115919

PATIENT
  Age: 78 Year
  Sex: Male
  Weight: 51 kg

DRUGS (6)
  1. ETOPOSIDE. [Suspect]
     Active Substance: ETOPOSIDE
     Indication: SMALL CELL LUNG CANCER
     Dosage: 160 MILLIGRAM, QD
     Route: 042
     Dates: start: 20190516, end: 20190518
  2. TECENTRIQ [Suspect]
     Active Substance: ATEZOLIZUMAB
     Indication: SMALL CELL LUNG CANCER
     Dosage: 1200 MILLIGRAM, TOTAL
     Route: 042
     Dates: start: 20190516, end: 20190516
  3. APREPITANT. [Concomitant]
     Active Substance: APREPITANT
     Dosage: UNK
  4. CARBOPLATIN. [Suspect]
     Active Substance: CARBOPLATIN
     Indication: SMALL CELL LUNG CANCER
     Dosage: 460 KILO-INTERNATIONAL UNIT, TOTAL
     Route: 042
     Dates: start: 20190516, end: 20190516
  5. ONDANSETRON [Concomitant]
     Active Substance: ONDANSETRON
     Dosage: UNK
  6. METHYLPREDNISOLONE. [Concomitant]
     Active Substance: METHYLPREDNISOLONE
     Dosage: UNK

REACTIONS (1)
  - Neutropenia [Fatal]

NARRATIVE: CASE EVENT DATE: 20190529
